FAERS Safety Report 11632063 (Version 1)
Quarter: 2015Q4

REPORT INFORMATION
  Report Type: Report from Study
  Country: US (occurrence: US)
  Receive Date: 20151015
  Receipt Date: 20151015
  Transmission Date: 20160304
  Serious: Yes (Death, Other)
  Sender: FDA-Public Use
  Company Number: US-ROCHE-1144263

PATIENT

DRUGS (3)
  1. PEG-INTERFERON ALFA 2A [Suspect]
     Active Substance: PEGINTERFERON ALFA-2A
     Indication: HEPATITIS C
     Route: 065
  2. RIBAVIRIN. [Suspect]
     Active Substance: RIBAVIRIN
     Indication: HEPATITIS C
     Route: 065
  3. ELTROMBOPAG [Suspect]
     Active Substance: ELTROMBOPAG
     Indication: HEPATITIS C
     Route: 065

REACTIONS (7)
  - Sepsis [Unknown]
  - Encephalopathy [Unknown]
  - Death [Fatal]
  - Hepatic failure [Unknown]
  - Multi-organ failure [Unknown]
  - Pneumonia [Unknown]
  - Infection [Unknown]
